FAERS Safety Report 9995561 (Version 1)
Quarter: 2014Q1

REPORT INFORMATION
  Report Type: Spontaneous
  Country: US (occurrence: US)
  Receive Date: 20140311
  Receipt Date: 20140311
  Transmission Date: 20141002
  Serious: Yes (Other)
  Sender: FDA-Public Use
  Company Number: US-PFIZER INC-2014063341

PATIENT
  Age: 34 Year
  Sex: Female
  Weight: 102.95 kg

DRUGS (15)
  1. XELJANZ [Suspect]
     Indication: RHEUMATOID ARTHRITIS
     Dosage: 5 MG, 2X/DAY
     Route: 048
     Dates: start: 201309, end: 20131125
  2. CELEBREX [Suspect]
     Indication: INFLAMMATION
     Dosage: 200 MG, 2X/DAY
     Route: 048
     Dates: end: 20131202
  3. NUVARING [Suspect]
     Indication: CONTRACEPTION
     Dosage: UNK
  4. METHOTREXATE [Concomitant]
     Dosage: UNK
  5. FOLIC ACID [Concomitant]
     Dosage: UNK
  6. ALPRAZOLAM [Concomitant]
     Dosage: UNK
  7. FLOVENT HFA [Concomitant]
     Dosage: UNK
  8. OMEPRAZOLE [Concomitant]
     Dosage: UNK
  9. ZYRTEC ALLERGY [Concomitant]
     Dosage: UNK
  10. ALBUTEROL HFA [Concomitant]
     Dosage: UNK
  11. FISH OIL [Concomitant]
     Dosage: UNK
  12. VITAMIN D3 [Concomitant]
     Dosage: UNK
  13. PREDNISONE [Concomitant]
     Dosage: UNK
  14. NORCO [Concomitant]
     Dosage: UNK
  15. PRISTIQ [Concomitant]
     Dosage: UNK

REACTIONS (9)
  - Pulmonary embolism [Recovering/Resolving]
  - Deep vein thrombosis [Recovering/Resolving]
  - Pain in extremity [Unknown]
  - Tachycardia [Unknown]
  - Chest pain [Unknown]
  - Axillary pain [Unknown]
  - Dyspnoea exertional [Unknown]
  - Arthralgia [Recovering/Resolving]
  - Antiphospholipid antibodies positive [Unknown]
